FAERS Safety Report 16660510 (Version 1)
Quarter: 2019Q3

REPORT INFORMATION
  Report Type: Spontaneous
  Country: US (occurrence: US)
  Receive Date: 20190801
  Receipt Date: 20190801
  Transmission Date: 20191004
  Serious: Yes (Disabling)
  Sender: FDA-Public Use
  Company Number: None

PATIENT
  Age: 53 Year
  Sex: Female
  Weight: 83.25 kg

DRUGS (9)
  1. CLOBETASOL [Suspect]
     Active Substance: CLOBETASOL
  2. BUSPERONE [Concomitant]
  3. CEPHILEXIN [Concomitant]
  4. VIT B [Concomitant]
     Active Substance: VITAMIN B
  5. TRIAMCINOLONE [Suspect]
     Active Substance: TRIAMCINOLONE
     Indication: ECZEMA
     Route: 061
     Dates: start: 19860619, end: 20180828
  6. BETAMETHASONE. [Suspect]
     Active Substance: BETAMETHASONE
  7. BUSPARE [Concomitant]
  8. LOVISTATIN [Concomitant]
  9. VIT D [Concomitant]
     Active Substance: VITAMIN D NOS

REACTIONS (7)
  - Product prescribing issue [None]
  - Skin burning sensation [None]
  - Scab [None]
  - Skin infection [None]
  - Skin haemorrhage [None]
  - Steroid withdrawal syndrome [None]
  - Alopecia [None]

NARRATIVE: CASE EVENT DATE: 20180728
